FAERS Safety Report 18980996 (Version 1)
Quarter: 2021Q1

REPORT INFORMATION
  Report Type: Spontaneous
  Country: PT (occurrence: PT)
  Receive Date: 20210308
  Receipt Date: 20210308
  Transmission Date: 20210420
  Serious: Yes (Hospitalization, Other)
  Sender: FDA-Public Use
  Company Number: PT-TAKEDA-2021TUS012412

PATIENT
  Age: 38 Year
  Sex: Female

DRUGS (2)
  1. AZATHIOPRINE. [Interacting]
     Active Substance: AZATHIOPRINE
     Indication: CROHN^S DISEASE
     Route: 065
  2. MESALAZINE [Suspect]
     Active Substance: MESALAMINE
     Indication: CROHN^S DISEASE
     Dosage: 2 GRAM, QD
     Route: 065

REACTIONS (3)
  - Drug interaction [Recovered/Resolved]
  - Myelosuppression [Recovered/Resolved]
  - Cellulitis [Recovered/Resolved]
